FAERS Safety Report 9277128 (Version 1)
Quarter: 2013Q2

REPORT INFORMATION
  Report Type: Spontaneous
  Country: GB (occurrence: GB)
  Receive Date: 20130507
  Receipt Date: 20130507
  Transmission Date: 20140414
  Serious: Yes (Other)
  Sender: FDA-Public Use
  Company Number: GB-BRISTOL-MYERS SQUIBB COMPANY-18836072

PATIENT
  Age: 59 Year
  Sex: Female
  Weight: 112 kg

DRUGS (8)
  1. BYDUREON [Suspect]
     Indication: DIABETES MELLITUS
     Route: 058
     Dates: start: 20130124, end: 20130416
  2. BENDROFLUMETHIAZIDE [Concomitant]
  3. LEVOTHYROXINE [Concomitant]
  4. LOSARTAN [Concomitant]
  5. AMLODIPINE [Concomitant]
  6. GLICLAZIDE [Concomitant]
  7. METFORMIN [Concomitant]
  8. SERETIDE [Concomitant]

REACTIONS (2)
  - Lipohypertrophy [Unknown]
  - Erythema [Recovering/Resolving]
